FAERS Safety Report 12087249 (Version 2)
Quarter: 2017Q1

REPORT INFORMATION
  Report Type: Spontaneous
  Country: US (occurrence: US)
  Receive Date: 20160217
  Receipt Date: 20170218
  Transmission Date: 20170428
  Serious: No
  Sender: FDA-Public Use
  Company Number: US-ALLERGAN-1525611US

PATIENT
  Age: 60 Year
  Sex: Female
  Weight: 79.37 kg

DRUGS (1)
  1. RESTASIS [Suspect]
     Active Substance: CYCLOSPORINE
     Indication: DRY EYE
     Dosage: PROPER USAGE
     Route: 047
     Dates: start: 201509

REACTIONS (2)
  - Ocular hyperaemia [Not Recovered/Not Resolved]
  - Abdominal hernia repair [Recovered/Resolved]

NARRATIVE: CASE EVENT DATE: 20151124
